FAERS Safety Report 12854036 (Version 1)
Quarter: 2016Q4

REPORT INFORMATION
  Report Type: Spontaneous
  Country: US (occurrence: US)
  Receive Date: 20161017
  Receipt Date: 20161017
  Transmission Date: 20170207
  Serious: No
  Sender: FDA-Public Use
  Company Number: US-PFIZER INC-2015177031

PATIENT
  Age: 59 Year
  Sex: Male
  Weight: 104.31 kg

DRUGS (6)
  1. LEVOTHYROXINE. [Concomitant]
     Active Substance: LEVOTHYROXINE
     Indication: THYROID DISORDER
     Dosage: UNK
  2. LOSARTAN/HCT [Concomitant]
     Active Substance: HYDROCHLOROTHIAZIDE\LOSARTAN POTASSIUM
     Dosage: UNK
  3. PRAVASTATIN. [Concomitant]
     Active Substance: PRAVASTATIN
     Dosage: UNK
  4. ATENOLOL. [Concomitant]
     Active Substance: ATENOLOL
     Dosage: UNK
  5. LYRICA [Suspect]
     Active Substance: PREGABALIN
     Dosage: 150 MG, 3X/DAY, (1 PILL IN MORNING,2 AT NIGHT)
     Route: 048
  6. LYRICA [Suspect]
     Active Substance: PREGABALIN
     Indication: NEUROPATHY PERIPHERAL
     Dosage: 150 MG, 3X/DAY (75 MG TWO TABLETS 3 TIMES A DAY, BUT DOSE IS 75 MG)
     Route: 048
     Dates: end: 20150512

REACTIONS (11)
  - Peripheral swelling [Unknown]
  - Musculoskeletal discomfort [Unknown]
  - Chondropathy [Unknown]
  - Pain [Unknown]
  - Drug dose omission [Unknown]
  - Weight increased [Not Recovered/Not Resolved]
  - Discomfort [Unknown]
  - Gait disturbance [Unknown]
  - Intentional product misuse [Unknown]
  - Blister [Unknown]
  - Burning sensation [Unknown]

NARRATIVE: CASE EVENT DATE: 20161012
